FAERS Safety Report 9419055 (Version 1)
Quarter: 2013Q3

REPORT INFORMATION
  Report Type: Spontaneous
  Country: BR (occurrence: BR)
  Receive Date: 20130725
  Receipt Date: 20130725
  Transmission Date: 20140515
  Serious: Yes (Hospitalization)
  Sender: FDA-Public Use
  Company Number: PHHY2013BR078446

PATIENT
  Sex: Female

DRUGS (1)
  1. EXELON PATCH [Suspect]
     Dosage: 10 MG, UNK
     Route: 062

REACTIONS (1)
  - Feeling abnormal [Unknown]
